FAERS Safety Report 5870399-8 (Version None)
Quarter: 2008Q3

REPORT INFORMATION
  Report Type: 
  Country: None (occurrence: None)
  Receive Date: 20080904
  Receipt Date: 20071227
  Transmission Date: 20090109
  Serious: No
  Sender: FDA-Public Use
  Company Number: US-BRISTOL-MYERS SQUIBB COMPANY-14025902

PATIENT
  Age: 50 Year
  Sex: Female
  Weight: 107 kg

DRUGS (3)
  1. DEFINITY [Suspect]
     Indication: ECHOCARDIOGRAM
     Route: 040
  2. ZOCOR [Concomitant]
  3. LISINOPRIL [Concomitant]

REACTIONS (1)
  - HEADACHE [None]
